FAERS Safety Report 17376462 (Version 1)
Quarter: 2020Q1

REPORT INFORMATION
  Report Type: Spontaneous
  Country: US (occurrence: US)
  Receive Date: 20200205
  Receipt Date: 20200205
  Transmission Date: 20200409
  Serious: Yes (Disabling, Other)
  Sender: FDA-Public Use
  Company Number: None

PATIENT
  Age: 32 Year
  Sex: Male
  Weight: 60.75 kg

DRUGS (1)
  1. DEXTROAMPHET SACCHARAT, AMPHET ASPARTATE, DEXTROAMPHET SULFATE AND AMPHET SULFAT [Suspect]
     Active Substance: AMPHETAMINE ASPARTATE\AMPHETAMINE SULFATE\DEXTROAMPHETAMINE SACCHARATE\DEXTROAMPHETAMINE SULFATE
     Indication: ATTENTION DEFICIT/HYPERACTIVITY DISORDER
     Dosage: ?          QUANTITY:1 TABLET(S);?
     Route: 048
     Dates: start: 20200204, end: 20200204

REACTIONS (10)
  - Product odour abnormal [None]
  - Secretion discharge [None]
  - Tinnitus [None]
  - Foreign body sensation in eyes [None]
  - Asthenia [None]
  - Product physical issue [None]
  - Heart rate decreased [None]
  - Product substitution issue [None]
  - Suspected counterfeit product [None]
  - Headache [None]

NARRATIVE: CASE EVENT DATE: 20200204
